FAERS Safety Report 17667587 (Version 2)
Quarter: 2020Q2

REPORT INFORMATION
  Report Type: Spontaneous
  Country: US (occurrence: US)
  Receive Date: 20200414
  Receipt Date: 20200508
  Transmission Date: 20200713
  Serious: No
  Sender: FDA-Public Use
  Company Number: US-CELGENEUS-USA-20200402263

PATIENT
  Sex: Male

DRUGS (6)
  1. OTEZLA [Suspect]
     Active Substance: APREMILAST
     Indication: ILL-DEFINED DISORDER
     Dosage: 10 MILLIGRAM AM
     Route: 048
     Dates: start: 20200306
  2. OTEZLA [Suspect]
     Active Substance: APREMILAST
     Indication: OFF LABEL USE
     Dosage: 20 MILLIGRAM (10 MG AM AND PM)
     Route: 048
     Dates: start: 20200307
  3. OTEZLA [Suspect]
     Active Substance: APREMILAST
     Dosage: 20MG AM AND 30MG PM
     Route: 048
     Dates: start: 20200310
  4. OTEZLA [Suspect]
     Active Substance: APREMILAST
     Dosage: 60 MILLIGRAM
     Route: 048
     Dates: start: 20200311, end: 20200325
  5. OTEZLA [Suspect]
     Active Substance: APREMILAST
     Dosage: 10 MG AM AND 20 MG PM
     Route: 048
     Dates: start: 20200308
  6. OTEZLA [Suspect]
     Active Substance: APREMILAST
     Dosage: 40 MILLIGRAM
     Route: 048
     Dates: start: 20200309

REACTIONS (1)
  - Nausea [Unknown]

NARRATIVE: CASE EVENT DATE: 2020
